FAERS Safety Report 7578815-0 (Version None)
Quarter: 2011Q2

REPORT INFORMATION
  Report Type: 
  Country: None (occurrence: None)
  Receive Date: 20110628
  Receipt Date: 20110615
  Transmission Date: 20111010
  Serious: Yes (Life-Threatening, Hospitalization)
  Sender: FDA-Public Use
  Company Number: JP-CELGENEUS-087-21660-11060643

PATIENT
  Age: 52 Year
  Sex: Female

DRUGS (8)
  1. DECADRON [Concomitant]
     Dosage: 6.6 MILLIGRAM
     Route: 051
     Dates: start: 20110419, end: 20110527
  2. GRANISETRON HCL [Concomitant]
     Dosage: 3 MILLIGRAM
     Route: 051
     Dates: start: 20110419, end: 20110527
  3. DECADRON [Concomitant]
  4. P GUARD [Concomitant]
     Indication: PAIN
  5. ABRAXANE [Suspect]
     Dosage: 300 MILLIGRAM
     Route: 051
     Dates: start: 20110527, end: 20110527
  6. GRANISETRON HCL [Concomitant]
  7. ABRAXANE [Suspect]
     Indication: BREAST CANCER METASTATIC
     Dosage: 300 MILLIGRAM
     Route: 051
     Dates: start: 20110419, end: 20110419
  8. P GUARD [Concomitant]
     Dosage: 120 MILLIGRAM
     Route: 048
     Dates: start: 20110328

REACTIONS (6)
  - DIARRHOEA [None]
  - HEPATIC FUNCTION ABNORMAL [None]
  - VOMITING [None]
  - SOMNOLENCE [None]
  - RESPIRATORY DEPRESSION [None]
  - CONSTIPATION [None]
